FAERS Safety Report 13834131 (Version 1)
Quarter: 2017Q3

REPORT INFORMATION
  Report Type: Report from Study
  Country: GB (occurrence: GB)
  Receive Date: 20170804
  Receipt Date: 20170804
  Transmission Date: 20171127
  Serious: Yes (Other)
  Sender: FDA-Public Use
  Company Number: GB-GILEAD-2017-0286240

PATIENT
  Age: 80 Year
  Sex: Male

DRUGS (1)
  1. IDELALISIB [Suspect]
     Active Substance: IDELALISIB
     Indication: CHRONIC LYMPHOCYTIC LEUKAEMIA
     Dosage: 150 MG, BID
     Route: 048
     Dates: start: 20151101

REACTIONS (4)
  - Coronary artery bypass [Unknown]
  - Wound infection [Unknown]
  - Aortic valve repair [Unknown]
  - Lymphocytosis [Unknown]

NARRATIVE: CASE EVENT DATE: 201603
